FAERS Safety Report 10570998 (Version 2)
Quarter: 2015Q1

REPORT INFORMATION
  Report Type: Report from Study
  Country: US (occurrence: US)
  Receive Date: 20141107
  Receipt Date: 20150219
  Transmission Date: 20150720
  Serious: Yes (Hospitalization)
  Sender: FDA-Public Use
  Company Number: US-ELI_LILLY_AND_COMPANY-US201410010536

PATIENT
  Age: 48 Year
  Sex: Male
  Weight: 72.56 kg

DRUGS (2)
  1. OLANZAPINE LONG-ACTING IM [Suspect]
     Active Substance: OLANZAPINE PAMOATE
     Indication: SCHIZOPHRENIA
     Dosage: 300 MG, UNKNOWN
     Route: 030
     Dates: start: 20120330
  2. OLANZAPINE LONG-ACTING IM [Suspect]
     Active Substance: OLANZAPINE PAMOATE
     Dosage: 405 MG, UNKNOWN
     Route: 030
     Dates: start: 2011, end: 20120319

REACTIONS (5)
  - Dizziness [Recovered/Resolved]
  - Drooling [Recovered/Resolved]
  - Confusional state [Recovered/Resolved]
  - Depressed level of consciousness [Recovered/Resolved]
  - Dysarthria [Recovered/Resolved]

NARRATIVE: CASE EVENT DATE: 20141024
